FAERS Safety Report 5083387-9 (Version None)
Quarter: 2006Q3

REPORT INFORMATION
  Report Type: 
  Country: None (occurrence: None)
  Receive Date: 20060818
  Receipt Date: 20060810
  Transmission Date: 20061208
  Serious: Yes (Death)
  Sender: FDA-Public Use
  Company Number: IT-BRISTOL-MYERS SQUIBB COMPANY-13471123

PATIENT
  Age: 50 Year
  Sex: Male

DRUGS (3)
  1. CISPLATIN [Suspect]
     Indication: BLADDER CANCER
     Dates: start: 20060508, end: 20060512
  2. MITOMYCIN [Suspect]
     Indication: BLADDER CANCER
     Dates: start: 20060508
  3. FLUOROURACIL [Suspect]
     Indication: BLADDER CANCER
     Dates: start: 20060508, end: 20060512

REACTIONS (3)
  - ENTERITIS NECROTICANS [None]
  - PANCYTOPENIA [None]
  - SEPTIC SHOCK [None]
